FAERS Safety Report 8612050-X (Version None)
Quarter: 2012Q3

REPORT INFORMATION
  Report Type: 
  Country: None (occurrence: None)
  Receive Date: 20120809
  Receipt Date: 20120730
  Transmission Date: 20120928
  Serious: Yes (Hospitalization)
  Sender: FDA-Public Use
  Company Number: JP-2012-15940

PATIENT
  Age: 80 Year
  Sex: Female
  Weight: 58 kg

DRUGS (15)
  1. PROCYLIN (BERAPROST SODIUM) [Concomitant]
  2. FEBURIC (FEBUXISTAT) [Concomitant]
  3. ARGAMATE (CALCIUM POLYSTRYRENE SULFONATE) [Concomitant]
  4. SAMSCA [Suspect]
     Indication: FLUID RETENTION
     Dosage: 7.5 MG MILLIGRAM(S), QAM, ORAL
     Route: 048
     Dates: start: 20120513, end: 20120513
  5. DOXAZOSIN MESYLATE [Concomitant]
  6. ASPIRIN [Concomitant]
  7. VASOLATOR (GLUCEYL TRINITRATE) [Concomitant]
  8. LAC-B (BIFLDOBACTERIUM LACTIS) [Concomitant]
  9. INFEDIPINE CR (NIFEDIPINE) [Concomitant]
  10. HANP (CARPETIDE) [Concomitant]
  11. ALDACTONE [Concomitant]
  12. LANSOPRAZOLE [Concomitant]
  13. URSO 250 [Concomitant]
  14. LASIX [Concomitant]
  15. CRESTOR [Concomitant]

REACTIONS (4)
  - DRUG EFFECT DECREASED [None]
  - RENAL IMPAIRMENT [None]
  - DIALYSIS [None]
  - CIRCULATORY COLLAPSE [None]
